FAERS Safety Report 19518778 (Version 1)
Quarter: 2021Q3

REPORT INFORMATION
  Report Type: Spontaneous
  Country: US (occurrence: US)
  Receive Date: 20210711
  Receipt Date: 20210711
  Transmission Date: 20211014
  Serious: No
  Sender: FDA-Public Use
  Company Number: None

PATIENT
  Age: 78 Year
  Sex: Female
  Weight: 89.4 kg

DRUGS (21)
  1. HYDROCHLOROTHIAZIDE. [Concomitant]
     Active Substance: HYDROCHLOROTHIAZIDE
  2. SENOKOT?S [Concomitant]
     Active Substance: DOCUSATE SODIUM\SENNOSIDES
  3. VASCEPA [Concomitant]
     Active Substance: ICOSAPENT ETHYL
  4. CETIRIZINE HCL [Concomitant]
     Active Substance: CETIRIZINE HYDROCHLORIDE
  5. LOSARTAN POTASSIUM. [Concomitant]
     Active Substance: LOSARTAN POTASSIUM
  6. VITAMIN D [Concomitant]
     Active Substance: VITAMIN D NOS
  7. IBRANCE [Suspect]
     Active Substance: PALBOCICLIB
     Indication: BREAST CANCER
     Route: 048
     Dates: start: 20210614, end: 20210705
  8. FLUTICASONE PROPIONATE. [Concomitant]
     Active Substance: FLUTICASONE PROPIONATE
  9. MS CONTIN [Concomitant]
     Active Substance: MORPHINE SULFATE
  10. GLIPIZIDE. [Concomitant]
     Active Substance: GLIPIZIDE
  11. MULTI VITAMIN DAILY [Concomitant]
  12. ONDANSETRON HCL [Concomitant]
     Active Substance: ONDANSETRON HYDROCHLORIDE
  13. PAROXETINE HCL [Concomitant]
     Active Substance: PAROXETINE HYDROCHLORIDE
  14. BASAGLAR KWIKPEN [Concomitant]
     Active Substance: INSULIN GLARGINE
  15. FERROUS SULFATE. [Concomitant]
     Active Substance: FERROUS SULFATE
  16. REFRESH OPTIVE ADVANCED PF [Concomitant]
  17. VOLTAREN [Concomitant]
     Active Substance: DICLOFENAC SODIUM
  18. CALCIUM CARBONATE?VITAMIN D [Concomitant]
     Active Substance: CALCIUM CARBONATE\VITAMIN D
  19. LEVOTHYROXINE SODIUM. [Concomitant]
     Active Substance: LEVOTHYROXINE SODIUM
  20. LOVASTATIN. [Concomitant]
     Active Substance: LOVASTATIN
  21. TRADJENTA [Concomitant]
     Active Substance: LINAGLIPTIN

REACTIONS (3)
  - Neutrophil count decreased [None]
  - White blood cell count decreased [None]
  - Platelet count decreased [None]

NARRATIVE: CASE EVENT DATE: 20210705
